FAERS Safety Report 15569004 (Version 1)
Quarter: 2018Q4

REPORT INFORMATION
  Report Type: Spontaneous
  Country: US (occurrence: US)
  Receive Date: 20181031
  Receipt Date: 20181031
  Transmission Date: 20190205
  Serious: No
  Sender: FDA-Public Use
  Company Number: US-AUROBINDO-AUR-APU-2018-037190

PATIENT

DRUGS (2)
  1. ROCURONIUM BROMIDE INJECTION 50MG/5ML [Suspect]
     Active Substance: ROCURONIUM BROMIDE
     Indication: SURGERY
     Dosage: UNK
  2. ROCURONIUM BROMIDE INJECTION 50MG/5ML [Suspect]
     Active Substance: ROCURONIUM BROMIDE
     Dosage: UNK
     Route: 065
     Dates: start: 20180717, end: 20180717

REACTIONS (1)
  - Drug ineffective [Unknown]
